FAERS Safety Report 15539151 (Version 5)
Quarter: 2019Q1

REPORT INFORMATION
  Report Type: Spontaneous
  Country: JP (occurrence: JP)
  Receive Date: 20181022
  Receipt Date: 20190117
  Transmission Date: 20190417
  Serious: Yes (Death, Disabling, Other)
  Sender: FDA-Public Use
  Company Number: PHJP2018JP017895

PATIENT
  Sex: Male
  Weight: 2.8 kg

DRUGS (2)
  1. TASIGNA [Suspect]
     Active Substance: NILOTINIB
     Indication: FOETAL EXPOSURE DURING PREGNANCY
     Dosage: MATERNAL DOSE: 200 MG, BID
     Route: 064
     Dates: start: 201608
  2. KEFRAL [Concomitant]
     Active Substance: CEFACLOR
     Indication: FOETAL EXPOSURE DURING PREGNANCY
     Dosage: MATERNAL DOSE: 250 MG, TID
     Route: 064

REACTIONS (11)
  - Generalised oedema [Fatal]
  - Atrioventricular septal defect [Unknown]
  - Lymphangioma [Fatal]
  - Trisomy 21 [Unknown]
  - Atelectasis neonatal [Unknown]
  - Pulmonary oedema [Fatal]
  - Hydrops foetalis [Fatal]
  - Fluid retention [Fatal]
  - Ascites [Fatal]
  - Pulmonary hypoplasia [Unknown]
  - Pleural effusion [Fatal]

NARRATIVE: CASE EVENT DATE: 20180530
